FAERS Safety Report 11020089 (Version 1)
Quarter: 2015Q2

REPORT INFORMATION
  Report Type: Spontaneous
  Country: ID (occurrence: ID)
  Receive Date: 20150412
  Receipt Date: 20150412
  Transmission Date: 20150821
  Serious: Yes (Other)
  Sender: FDA-Public Use
  Company Number: ID-ROCHE-1562636

PATIENT
  Sex: Female

DRUGS (1)
  1. XENICAL [Suspect]
     Active Substance: ORLISTAT
     Indication: PRODUCT USED FOR UNKNOWN INDICATION
     Route: 065
     Dates: start: 2014

REACTIONS (1)
  - Cyst [Unknown]
